FAERS Safety Report 9253912 (Version 1)
Quarter: 2013Q1

REPORT INFORMATION
  Report Type: Spontaneous
  Country: US (occurrence: None)
  Receive Date: 20121203
  Receipt Date: 20121203
  Transmission Date: 20140127
  Serious: Yes (Hospitalization, Disabling, Other)
  Sender: FDA-Public Use
  Company Number: 2011SP047265

PATIENT
  Age: 30 Year
  Sex: Female
  Weight: 79.4 kg

DRUGS (1)
  1. NUVARING [Suspect]
     Indication: PRODUCT USED FOR UNKNOWN INDICATION
     Dates: start: 200707, end: 200910

REACTIONS (10)
  - Pulmonary embolism [None]
  - Deep vein thrombosis [None]
  - Constipation [None]
  - Tension headache [None]
  - Wisdom teeth removal [None]
  - Visual acuity reduced [None]
  - Nocturia [None]
  - Lung infiltration [None]
  - Musculoskeletal chest pain [None]
  - Chest pain [None]
